FAERS Safety Report 9136019 (Version 1)
Quarter: 2013Q1

REPORT INFORMATION
  Report Type: Spontaneous
  Country: US (occurrence: US)
  Receive Date: 20130304
  Receipt Date: 20130304
  Transmission Date: 20140127
  Serious: No
  Sender: FDA-Public Use
  Company Number: US-ABBOTT-12P-163-0921438-00

PATIENT
  Sex: Male
  Weight: 93.07 kg

DRUGS (3)
  1. ANDROGEL 1% [Suspect]
     Indication: BLOOD TESTOSTERONE DECREASED
     Dosage: 2 PUMPS PER DAY
     Dates: start: 2009
  2. ANDROGEL 1% [Suspect]
     Dosage: 4 PUMPS PER DAY
  3. UNKNOWN MEDICATIONS [Concomitant]
     Indication: DIABETES MELLITUS

REACTIONS (2)
  - Red blood cell count increased [Unknown]
  - Blood testosterone free decreased [None]
